FAERS Safety Report 15739702 (Version 1)
Quarter: 2018Q4

REPORT INFORMATION
  Report Type: Spontaneous
  Country: US (occurrence: US)
  Receive Date: 20181217
  Receipt Date: 20181217
  Transmission Date: 20190205
  Serious: Yes (Other)
  Sender: FDA-Public Use
  Company Number: None

PATIENT
  Age: 50 Year
  Sex: Male

DRUGS (1)
  1. CARBON DIOXIDE USP [Suspect]
     Active Substance: CARBON DIOXIDE

REACTIONS (1)
  - Device issue [None]

NARRATIVE: CASE EVENT DATE: 20180722
